FAERS Safety Report 11444651 (Version 4)
Quarter: 2016Q1

REPORT INFORMATION
  Report Type: Spontaneous
  Country: US (occurrence: US)
  Receive Date: 20150831
  Receipt Date: 20160323
  Transmission Date: 20160525
  Serious: Yes (Other)
  Sender: FDA-Public Use
  Company Number: ADR-2015-01645

PATIENT
  Age: 54 Year
  Sex: Male

DRUGS (20)
  1. LIORESAL [Suspect]
     Active Substance: BACLOFEN
     Indication: MUSCLE SPASTICITY
     Dosage: 300 MCG/DAY
     Route: 037
  2. CHLORHEXIDE GLUCONATE 0.12% MOUTH/THROAT SOLUTION [Suspect]
     Active Substance: CHLORHEXIDINE GLUCONATE
     Dosage: 0.5 OX/TEETH AND GUMS BID
     Route: 004
  3. ACIDOPHILUS [Suspect]
     Active Substance: LACTOBACILLUS ACIDOPHILUS
     Dosage: CAP, GASTRIC TUBE BID
     Route: 050
  4. METOCLOPRAMIDE HCL [Suspect]
     Active Substance: METOCLOPRAMIDE HYDROCHLORIDE
     Dosage: 10 MG ORAL TABLET
     Route: 048
  5. NOVOLIN N [Suspect]
     Active Substance: INSULIN HUMAN
     Dosage: 17 UNITS SC BID
     Route: 058
  6. DILANTIN [Suspect]
     Active Substance: PHENYTOIN
     Dosage: 1.25MG/5ML;ADMINISTER 200MG=8ML, VIN GASTRIC TUBE IN PM AND 125MG/5ML;150 MG=6MLS QAM
     Route: 050
  7. BACLOFEN, UNKNOWN [Suspect]
     Active Substance: BACLOFEN
     Indication: MUSCLE SPASTICITY
     Dosage: 24 MCG/DAY
     Route: 037
  8. PROTONIX [Suspect]
     Active Substance: PANTOPRAZOLE SODIUM
     Dosage: 1 PACKET = 40 MG VIA GASTRIC TUBE BID
     Route: 050
  9. CEFPODOXIME PROXETIL. [Suspect]
     Active Substance: CEFPODOXIME PROXETIL
     Dosage: 200 MG ORAL TABLET
     Route: 048
  10. METOPROLOL TARTRATE. [Suspect]
     Active Substance: METOPROLOL TARTRATE
     Dosage: 25 MG 3 TABS = 75 MG VIA GASTRIC TUBE BID
     Route: 050
  11. LIORESAL [Suspect]
     Active Substance: BACLOFEN
     Indication: MUSCLE SPASTICITY
     Dosage: 100 TO 101 MCG/DAY
     Route: 037
  12. MYLANTA [Suspect]
     Active Substance: ALUMINUM HYDROXIDE\DIMETHICONE\MAGNESIUM HYDROXIDE
     Dosage: 200-2000-20 MG/5 ML GIVE 30 ML VIA GASTRIC TUBE PRN
     Route: 050
  13. SIMVASTATIN ORAL TABLET [Suspect]
     Active Substance: SIMVASTATIN
  14. IPRATROPIUM-ALBUTEROL 0.5-2.5 [Suspect]
     Active Substance: ALBUTEROL SULFATE\IPRATROPIUM BROMIDE
     Dosage: 3MG/3ML
     Route: 055
  15. FAMOTIDINE. [Suspect]
     Active Substance: FAMOTIDINE
     Dosage: 40MG/5ML;ADMINISTER 20 MG/2.5 ML VIA G TUBE BID
     Route: 050
  16. POTASSIUM CHLORIDE LIQUID [Suspect]
     Active Substance: POTASSIUM CHLORIDE
     Dosage: 7.5 ML = 20 MEQ GASTRIC TUBE BID
     Route: 050
  17. GUAIFENESIN LIQUID [Suspect]
     Active Substance: GUAIFENESIN
     Dosage: 100 MG/ML; 10 MLS, GASTRIC TUBE Q6HRS
     Route: 050
  18. ROBITUSSIN CF [Suspect]
     Active Substance: DEXTROMETHORPHAN\GUAIFENESIN\PSEUDOEPHEDRINE HYDROCHLORIDE
  19. LEVETIRACETAM ORAL SOLUTION [Suspect]
     Active Substance: LEVETIRACETAM
     Dosage: 1000MG-10ML VIA GASTRIC TUBE BID
     Route: 050
  20. VITAMIN C [Suspect]
     Active Substance: ASCORBIC ACID
     Dosage: 500 MG ORAL TABLET (1 TAB VIA G TUBE BID)
     Route: 050

REACTIONS (4)
  - Respiratory depression [Unknown]
  - No therapeutic response [Unknown]
  - Drug hypersensitivity [Unknown]
  - Apallic syndrome [Unknown]

NARRATIVE: CASE EVENT DATE: 20140714
